FAERS Safety Report 18191642 (Version 1)
Quarter: 2020Q3

REPORT INFORMATION
  Report Type: Other
  Country: ES (occurrence: ES)
  Receive Date: 20200825
  Receipt Date: 20200825
  Transmission Date: 20201103
  Serious: Yes (Other)
  Sender: FDA-Public Use
  Company Number: ES-CADILA HEALTHCARE LIMITED-ES-ZYDUS-054863

PATIENT

DRUGS (4)
  1. CALCIFEDIOL [Concomitant]
     Active Substance: CALCIFEDIOL
     Indication: OSTEOPOROSIS
     Dosage: 0,266 MG
     Route: 048
     Dates: start: 20200130
  2. PROLIA [Concomitant]
     Active Substance: DENOSUMAB
     Indication: OSTEOPOROSIS
     Route: 058
     Dates: start: 20200131
  3. ATORVASTATIN [Suspect]
     Active Substance: ATORVASTATIN
     Indication: HYPERLIPIDAEMIA
     Dosage: 20 MG 28 TABLETS
     Route: 048
     Dates: start: 20200130, end: 20200703
  4. CALCIUM CARBONATE W/VITAMIN D [CALCIUM CARBONATE;COLECALCIFEROL] [Concomitant]
     Active Substance: CALCIUM CARBONATE\CHOLECALCIFEROL
     Indication: OSTEOPOROSIS
     Dosage: 1 DOSAGE FORM
     Route: 048
     Dates: start: 20200131

REACTIONS (5)
  - Cell death [Unknown]
  - Cholestasis [Unknown]
  - Pruritus [Unknown]
  - Hypocalcaemia [Unknown]
  - Hypervitaminosis D [Unknown]

NARRATIVE: CASE EVENT DATE: 20200720
